FAERS Safety Report 17215953 (Version 1)
Quarter: 2019Q4

REPORT INFORMATION
  Report Type: Spontaneous
  Country: US (occurrence: US)
  Receive Date: 20191230
  Receipt Date: 20191230
  Transmission Date: 20200122
  Serious: Yes (Other)
  Sender: FDA-Public Use
  Company Number: US-GALDERMA-US19077343

PATIENT
  Age: 68 Year
  Sex: Female

DRUGS (1)
  1. DOXYCYCLINE. [Suspect]
     Active Substance: DOXYCYCLINE
     Indication: ULCERATIVE KERATITIS
     Route: 048

REACTIONS (5)
  - Nausea [Unknown]
  - Iron deficiency anaemia [Unknown]
  - Gastritis erosive [Unknown]
  - Abdominal pain [Unknown]
  - Product use in unapproved indication [Recovered/Resolved]
